FAERS Safety Report 18207085 (Version 2)
Quarter: 2021Q2

REPORT INFORMATION
  Report Type: Spontaneous
  Country: US (occurrence: US)
  Receive Date: 20200828
  Receipt Date: 20210412
  Transmission Date: 20210717
  Serious: No
  Sender: FDA-Public Use
  Company Number: US-BAYER-2020-178609

PATIENT
  Sex: Female

DRUGS (7)
  1. VIOXX [Suspect]
     Active Substance: ROFECOXIB
  2. CLINORIL [Suspect]
     Active Substance: SULINDAC
  3. VOLTAREN [DICLOFENAC] [Suspect]
     Active Substance: DICLOFENAC SODIUM
  4. ALEVE [Suspect]
     Active Substance: NAPROXEN SODIUM
  5. CELEBREX [Suspect]
     Active Substance: CELECOXIB
  6. GENUINE BAYER ASPIRIN [Concomitant]
     Active Substance: ASPIRIN
     Dosage: UNK
  7. FELDENE [Suspect]
     Active Substance: PIROXICAM

REACTIONS (2)
  - Gastritis [Unknown]
  - Duodenitis [Unknown]
